FAERS Safety Report 6145354-3 (Version None)
Quarter: 2009Q2

REPORT INFORMATION
  Report Type: 
  Country: None (occurrence: None)
  Receive Date: 20090402
  Receipt Date: 20090319
  Transmission Date: 20091009
  Serious: Yes (Hospitalization)
  Sender: FDA-Public Use
  Company Number: 2009AL001124

PATIENT
  Age: 47 Year
  Sex: Female
  Weight: 73.9363 kg

DRUGS (13)
  1. DIGOXIN [Suspect]
     Indication: CARDIAC DISORDER
     Dosage: 0.125MG, DAILY, PO
     Route: 048
     Dates: start: 20000101, end: 20061001
  2. RENAGEL [Concomitant]
  3. METOPROLOL TARTRATE [Concomitant]
  4. HYDRALAZINE HCL [Concomitant]
  5. NEPHROCAPS [Concomitant]
  6. IMDUR [Concomitant]
  7. DARBEPOETIN [Concomitant]
  8. OSOSORBIDE MONITRATE [Concomitant]
  9. FOLIC ACID [Concomitant]
  10. ENALAPRIL [Concomitant]
  11. THIAMINE HCL [Concomitant]
  12. VASOTEC [Concomitant]
  13. ZANTAC [Concomitant]

REACTIONS (20)
  - ACTIVITIES OF DAILY LIVING IMPAIRED [None]
  - ANHEDONIA [None]
  - ANOREXIA [None]
  - ANXIETY [None]
  - CEREBROVASCULAR ACCIDENT [None]
  - DEHYDRATION [None]
  - DEPRESSION [None]
  - ECONOMIC PROBLEM [None]
  - EMOTIONAL DISTRESS [None]
  - FATIGUE [None]
  - GAIT DISTURBANCE [None]
  - HAEMODIALYSIS [None]
  - ILL-DEFINED DISORDER [None]
  - MALAISE [None]
  - MENTAL STATUS CHANGES [None]
  - MULTIPLE INJURIES [None]
  - NAUSEA [None]
  - PAIN [None]
  - RENAL FAILURE ACUTE [None]
  - SYNCOPE [None]
